FAERS Safety Report 26193392 (Version 1)
Quarter: 2025Q4

REPORT INFORMATION
  Report Type: Spontaneous
  Country: EU (occurrence: EU)
  Receive Date: 20251223
  Receipt Date: 20251223
  Transmission Date: 20260117
  Serious: Yes (Other)
  Sender: FRESENIUS KABI
  Company Number: None

PATIENT
  Age: 92 Year
  Sex: Male

DRUGS (4)
  1. LINEZOLID [Suspect]
     Active Substance: LINEZOLID
     Indication: Osteitis
     Route: 042
     Dates: start: 20251110, end: 20251123
  2. LINEZOLID [Suspect]
     Active Substance: LINEZOLID
     Indication: Osteitis
     Route: 048
     Dates: start: 20251124, end: 20251126
  3. PIPERACILLIN [Suspect]
     Active Substance: PIPERACILLIN
     Indication: Osteitis
     Dosage: SEE COMMENTARY
     Route: 048
     Dates: start: 20251110, end: 20251126
  4. TAZOBACTAM [Suspect]
     Active Substance: TAZOBACTAM
     Indication: Osteitis
     Dosage: SEE COMMENTARY
     Route: 048
     Dates: start: 20251110, end: 20251126

REACTIONS (3)
  - Rash erythematous [Recovered/Resolved]
  - Eosinophilia [Recovering/Resolving]
  - Blood creatinine increased [Recovered/Resolved]

NARRATIVE: CASE EVENT DATE: 20251125
